FAERS Safety Report 6986224-8 (Version None)
Quarter: 2010Q3

REPORT INFORMATION
  Report Type: 
  Country: None (occurrence: None)
  Receive Date: 20100915
  Receipt Date: 20090810
  Transmission Date: 20110219
  Serious: Yes (Other)
  Sender: FDA-Public Use
  Company Number: US-WYE-H09675809

PATIENT
  Sex: Female
  Weight: 85.35 kg

DRUGS (3)
  1. PRISTIQ [Suspect]
     Indication: DEPRESSION
     Route: 048
     Dates: start: 20090506, end: 20090513
  2. IMITREX [Concomitant]
     Dosage: UNKNOWN
  3. TOPAMAX [Concomitant]
     Dosage: UNKNOWN

REACTIONS (1)
  - BLOOD PRESSURE INCREASED [None]
